FAERS Safety Report 6575278-9 (Version None)
Quarter: 2010Q1

REPORT INFORMATION
  Report Type: 
  Country: None (occurrence: None)
  Receive Date: 20100209
  Receipt Date: 20100202
  Transmission Date: 20100710
  Serious: Yes (Death, Hospitalization)
  Sender: FDA-Public Use
  Company Number: JP-ROCHE-670248

PATIENT
  Sex: Female
  Weight: 45 kg

DRUGS (22)
  1. TOCILIZUMAB [Suspect]
     Indication: RHEUMATOID ARTHRITIS
     Route: 041
     Dates: start: 20090615, end: 20090615
  2. TOCILIZUMAB [Suspect]
     Route: 041
     Dates: start: 20090713, end: 20090713
  3. TOCILIZUMAB [Suspect]
     Route: 041
     Dates: start: 20090810, end: 20090810
  4. TOCILIZUMAB [Suspect]
     Route: 041
     Dates: start: 20090907, end: 20090907
  5. METHOTREXATE [Suspect]
     Indication: RHEUMATOID ARTHRITIS
     Dosage: DOSE FORM: ORAL FORMULATION (NOT OTHERWISE SPECIFIED)
     Route: 048
  6. PREDNISOLONE [Concomitant]
     Dosage: DOSE FORM: ORAL FORMULATION (NOT OTHERWISE SPECIFIED) DOSE FORM: PERORAL AGENT
     Route: 048
     Dates: end: 20090809
  7. PREDNISOLONE [Concomitant]
     Dosage: DOSE FORM: ORAL FORMULATION (NOT OTHERWISE SPECIFIED)
     Route: 048
     Dates: start: 20090810
  8. MYSLEE [Concomitant]
     Route: 048
  9. DEPAS [Concomitant]
     Dosage: DOSE FORM: PERORAL AGENT
     Route: 048
  10. RESLIN [Concomitant]
     Dosage: DRUG REPORTED AS: RESLIN(TRAZODONE HYDROCHLORIDE)
     Route: 048
  11. TAKEPRON [Concomitant]
     Dosage: DOSE FORM: MINUTE GRAIN
     Route: 048
  12. LASIX [Concomitant]
     Dosage: FINE GRANULE
     Route: 048
  13. FOLIAMIN [Concomitant]
     Dosage: DOSE FORM: PERORAL AGENT
     Route: 048
  14. MAGNESIUM OXIDE [Concomitant]
     Dosage: DOSE FORM: PERORAL AGENT
     Route: 048
  15. AMLODIPINE [Concomitant]
     Dosage: AMLODIN OD
     Route: 048
  16. LAXOBERON [Concomitant]
     Dosage: NOTE: TAKEN AS NEEDED : 50ML A DAY FREQUENCY: DOSE FORM: PERORAL LIQUID PREPARATION
     Route: 048
  17. IMIDAFENACIN [Concomitant]
     Dosage: DRUG REPORTED AS: STAYBLA(IMIDAFENACIN)
     Route: 048
  18. FRANDOL [Concomitant]
     Dosage: FORM  : TAPE
     Route: 062
  19. VOLTAREN [Concomitant]
     Dosage: NOTE: 25-50MG DRUG REPORTED AS: VOLTAREN(DICLOFENAC SODIUM)
     Route: 054
  20. GLYCERIN [Concomitant]
     Dosage: FORM : ENEMA, NOTE: AT THE RIGHT TIME (DOSAGE DURING A DAY: 60ML)DRUG: KENEI G(GLYCERIN)
     Route: 054
  21. FLURBIPROFEN [Concomitant]
     Dosage: FORM : TAPE
     Route: 061
  22. RHEUMATREX [Concomitant]
     Route: 048

REACTIONS (2)
  - ARTHRALGIA [None]
  - LYMPHOMA [None]
